FAERS Safety Report 10238244 (Version 1)
Quarter: 2014Q2

REPORT INFORMATION
  Report Type: Spontaneous
  Country: US (occurrence: None)
  Receive Date: 20140613
  Receipt Date: 20140613
  Transmission Date: 20141212
  Serious: Yes (Hospitalization)
  Sender: FDA-Public Use
  Company Number: None

PATIENT
  Age: 79 Year
  Sex: Male
  Weight: 75.5 kg

DRUGS (1)
  1. DECITABINE [Suspect]
     Route: 042
     Dates: start: 20131105, end: 20131115

REACTIONS (2)
  - Leukopenia [None]
  - Anaemia [None]
